FAERS Safety Report 4935042-0 (Version None)
Quarter: 2006Q1

REPORT INFORMATION
  Report Type: 
  Country: None (occurrence: None)
  Receive Date: 20060302
  Receipt Date: 20060214
  Transmission Date: 20060701
  Serious: Yes (Other)
  Sender: FDA-Public Use
  Company Number: US200602002973

PATIENT
  Age: 80 Year
  Sex: Female

DRUGS (2)
  1. HUMULIN R [Suspect]
     Dosage: AS NEEDED,
     Dates: start: 19910101
  2. HUMULIN N [Suspect]
     Dosage: SEE IMAGE
     Dates: start: 19910101

REACTIONS (6)
  - BLOOD GLUCOSE INCREASED [None]
  - DEPRESSED LEVEL OF CONSCIOUSNESS [None]
  - DRUG DOSE OMISSION [None]
  - HYPERTENSION [None]
  - INCORRECT DOSE ADMINISTERED [None]
  - MEMORY IMPAIRMENT [None]
